FAERS Safety Report 19512181 (Version 1)
Quarter: 2021Q3

REPORT INFORMATION
  Report Type: Spontaneous
  Country: US (occurrence: US)
  Receive Date: 20210709
  Receipt Date: 20210709
  Transmission Date: 20211014
  Serious: No
  Sender: FDA-Public Use
  Company Number: US-VERTEX PHARMACEUTICALS-2021-010128

PATIENT
  Age: 68 Year
  Sex: Male
  Weight: 119 kg

DRUGS (10)
  1. COREG [Concomitant]
     Active Substance: CARVEDILOL
     Dosage: 6.5 MILLIGRAM
     Route: 048
  2. POTASSIUM CITRATE. [Concomitant]
     Active Substance: POTASSIUM CITRATE
     Dosage: UNK
  3. DIGOXIN. [Interacting]
     Active Substance: DIGOXIN
     Indication: PRODUCT USED FOR UNKNOWN INDICATION
     Dosage: UNK, QD
     Route: 065
  4. DIGOXIN. [Interacting]
     Active Substance: DIGOXIN
     Dosage: FULL DOSE
     Route: 065
  5. TRIKAFTA [Suspect]
     Active Substance: ELEXACAFTOR\IVACAFTOR\TEZACAFTOR
     Indication: CYSTIC FIBROSIS
     Dosage: 2 ORANGE TABS (100MG ELEXA/ 50MG TEZA/ 75MG IVA) AM ; 1 BLUE TAB (150MG IVA) PM
     Route: 048
     Dates: start: 20191227
  6. HUMALOG [Concomitant]
     Active Substance: INSULIN LISPRO
     Dosage: UNK
     Route: 058
  7. DIGOXIN. [Interacting]
     Active Substance: DIGOXIN
     Dosage: REDUCED DOSE TO EVERY OTHER DAY
     Route: 065
  8. LISINOPRIL. [Concomitant]
     Active Substance: LISINOPRIL
     Dosage: 2.5 MILLIGRAM, QD
     Route: 048
  9. COUMADIN [Concomitant]
     Active Substance: WARFARIN SODIUM
     Dosage: UNK
     Route: 048
  10. TOUJEO [Concomitant]
     Active Substance: INSULIN GLARGINE
     Dosage: UNK
     Route: 058

REACTIONS (8)
  - Ejection fraction decreased [Recovering/Resolving]
  - Atrial fibrillation [Recovered/Resolved]
  - Weight decreased [Unknown]
  - Toxicity to various agents [Unknown]
  - Drug interaction [Unknown]
  - Blood glucose increased [Unknown]
  - Balance disorder [Unknown]
  - Illness [Unknown]

NARRATIVE: CASE EVENT DATE: 202007
